FAERS Safety Report 9109771 (Version 1)
Quarter: 2013Q1

REPORT INFORMATION
  Report Type: Spontaneous
  Country: US (occurrence: US)
  Receive Date: 20130222
  Receipt Date: 20130222
  Transmission Date: 20140127
  Serious: No
  Sender: FDA-Public Use
  Company Number: US-PFIZER INC-2013064348

PATIENT
  Age: 64 Year
  Sex: Male
  Weight: 106 kg

DRUGS (3)
  1. TIKOSYN [Suspect]
     Indication: ATRIAL FIBRILLATION
     Dosage: 0.25 MG, 2X/DAY
     Route: 048
     Dates: start: 201212
  2. METFORMIN HCL [Interacting]
     Indication: BLOOD GLUCOSE INCREASED
     Dosage: 500 MG, 2X/DAY
     Route: 048
     Dates: start: 2010
  3. FUROSEMIDE [Concomitant]
     Dosage: 20 MG, UNK

REACTIONS (2)
  - Blood glucose increased [Not Recovered/Not Resolved]
  - Drug interaction [Not Recovered/Not Resolved]
